FAERS Safety Report 12269350 (Version 1)
Quarter: 2016Q2

REPORT INFORMATION
  Report Type: Spontaneous
  Country: ES (occurrence: ES)
  Receive Date: 20160414
  Receipt Date: 20160414
  Transmission Date: 20160815
  Serious: Yes (Other)
  Sender: FDA-Public Use
  Company Number: ES-TEVA-652155ISR

PATIENT
  Age: 62 Year
  Sex: Female

DRUGS (8)
  1. TRASTUZUMAB [Suspect]
     Active Substance: TRASTUZUMAB
     Indication: NEUROENDOCRINE BREAST TUMOUR
     Dosage: THE FIRST CYCLE; EVERY 21 DAYS
  2. CARBOPLATIN. [Suspect]
     Active Substance: CARBOPLATIN
     Indication: NEUROENDOCRINE BREAST TUMOUR
     Dosage: EVERY 21 DAYS
  3. TRASTUZUMAB [Suspect]
     Active Substance: TRASTUZUMAB
     Indication: NEUROENDOCRINE BREAST TUMOUR
     Dosage: EVERY 21 DAYS
  4. DOCETAXEL. [Suspect]
     Active Substance: DOCETAXEL
     Indication: NEUROENDOCRINE BREAST TUMOUR
     Dosage: THE FIRST CYCLE INVOLVED 80 MG/M2; EVERY 21 DAYS
  5. DOCETAXEL. [Suspect]
     Active Substance: DOCETAXEL
     Indication: NEUROENDOCRINE BREAST TUMOUR
     Dosage: EVERY 21 DAYS
  6. CARBOPLATIN. [Suspect]
     Active Substance: CARBOPLATIN
     Indication: NEUROENDOCRINE BREAST TUMOUR
     Dosage: THE FIRST CYCLE; EVERY 21 DAYS
  7. LETROZOLE. [Suspect]
     Active Substance: LETROZOLE
     Indication: HORMONE THERAPY
  8. TRASTUZUMAB [Suspect]
     Active Substance: TRASTUZUMAB
     Indication: NEUROENDOCRINE BREAST TUMOUR
     Dosage: EVERY 21 DAYS FOR A YEAR

REACTIONS (2)
  - Ventricular hypokinesia [Recovered/Resolved]
  - Diarrhoea [Unknown]
